FAERS Safety Report 18290898 (Version 1)
Quarter: 2020Q3

REPORT INFORMATION
  Report Type: Spontaneous
  Country: DE (occurrence: DE)
  Receive Date: 20200921
  Receipt Date: 20200921
  Transmission Date: 20201103
  Serious: Yes (Death, Hospitalization)
  Sender: FDA-Public Use
  Company Number: DE-PFIZER INC-2020360886

PATIENT
  Age: 84 Year
  Sex: Female

DRUGS (8)
  1. COLECALCIFEROL [Concomitant]
     Active Substance: CHOLECALCIFEROL
     Dosage: 1000 IE, 1?0?0?0, TABLETS
     Route: 048
  2. BISOPROLOL [Suspect]
     Active Substance: BISOPROLOL
     Dosage: 2.5 MG, 1?0?0?0, TABLETS
     Route: 048
  3. CANDESARTAN. [Suspect]
     Active Substance: CANDESARTAN
     Dosage: 8 MG, 1?0?1?0, TABLETS
     Route: 048
  4. ACETYLSALICYLIC ACID [Concomitant]
     Active Substance: ASPIRIN
     Dosage: 100 MG, 1?0?0?0, TABLETS
     Route: 048
  5. AMLODIPINE BESILATE [Suspect]
     Active Substance: AMLODIPINE BESYLATE
     Dosage: 5 MG, 0.5?0?0.5?0, TABLETS
     Route: 048
  6. CARBIMAZOL [Concomitant]
     Active Substance: CARBIMAZOLE
     Dosage: 10 MG, 1?0?0?0, TABLETS
     Route: 048
  7. DULOXETINE. [Suspect]
     Active Substance: DULOXETINE
     Dosage: 30 MG, 1?0?0?0, CAPSULES
     Route: 048
  8. METAMIZOLE [Concomitant]
     Active Substance: METAMIZOLE
     Dosage: 500 MG, 2?1?2?0, TABLETS
     Route: 048

REACTIONS (3)
  - Hypotension [Unknown]
  - Fracture [Unknown]
  - Fall [Unknown]
